FAERS Safety Report 6589677-2 (Version None)
Quarter: 2010Q1

REPORT INFORMATION
  Report Type: 
  Country: None (occurrence: None)
  Receive Date: 20100219
  Receipt Date: 20100212
  Transmission Date: 20100710
  Serious: Yes (Hospitalization)
  Sender: FDA-Public Use
  Company Number: US-BIOGENIDEC-2010BI001930

PATIENT
  Age: 66 Year
  Sex: Female
  Weight: 36 kg

DRUGS (33)
  1. TYSABRI [Suspect]
     Indication: MULTIPLE SCLEROSIS
     Route: 042
     Dates: start: 20090715
  2. AMBIEN CR [Concomitant]
  3. BACLOFEN [Concomitant]
     Route: 048
  4. BOTOX [Concomitant]
     Indication: MUSCLE SPASTICITY
  5. DEPAKOTE ER [Concomitant]
     Route: 048
  6. DULCOLAX [Concomitant]
  7. VITAMIN D [Concomitant]
  8. FOSAMAX [Concomitant]
     Route: 048
  9. FUROSEMIDE [Concomitant]
     Route: 048
  10. GEODON [Concomitant]
     Route: 048
  11. GLYCOLAX [Concomitant]
     Route: 048
  12. TOPROL-XL [Concomitant]
     Route: 048
  13. TYLENOL-500 [Concomitant]
  14. POTASSIUM [Concomitant]
  15. BUTT BUTTER [Concomitant]
  16. RECLAST [Concomitant]
     Dates: start: 20091201
  17. REMIFEMIN [Concomitant]
     Route: 048
  18. SANCTURA [Concomitant]
  19. TIZANIDINE HCL [Concomitant]
  20. XOPENEX [Concomitant]
  21. ZOLOFT [Concomitant]
     Route: 048
  22. CALMOSEPTINE [Concomitant]
  23. ALLANDERM [Concomitant]
  24. PROMETHAZINE [Concomitant]
     Route: 048
  25. ALPRAZOLAM [Concomitant]
     Route: 048
  26. DIPHENOXYLATE [Concomitant]
  27. DAKIN SOLUTION [Concomitant]
  28. ALEVE (CAPLET) [Concomitant]
  29. TUMS [Concomitant]
     Route: 048
  30. FERROUS SULFATE TAB [Concomitant]
     Route: 048
  31. CRANBERRY [Concomitant]
     Route: 048
  32. MEGACE [Concomitant]
  33. MIRALAX [Concomitant]

REACTIONS (2)
  - NEUROGENIC BOWEL [None]
  - PNEUMONIA [None]
